FAERS Safety Report 25627225 (Version 1)
Quarter: 2025Q3

REPORT INFORMATION
  Report Type: Spontaneous
  Country: US (occurrence: US)
  Receive Date: 20250731
  Receipt Date: 20250731
  Transmission Date: 20251021
  Serious: Yes (Other)
  Sender: MYLAN
  Company Number: US-MYLANLABS-2025M1064258

PATIENT
  Age: 71 Year
  Sex: Male

DRUGS (32)
  1. DOXEPIN [Suspect]
     Active Substance: DOXEPIN
     Indication: Formication
  2. DOXEPIN [Suspect]
     Active Substance: DOXEPIN
     Route: 065
  3. DOXEPIN [Suspect]
     Active Substance: DOXEPIN
     Route: 065
  4. DOXEPIN [Suspect]
     Active Substance: DOXEPIN
  5. GABAPENTIN [Suspect]
     Active Substance: GABAPENTIN
     Indication: Formication
  6. GABAPENTIN [Suspect]
     Active Substance: GABAPENTIN
     Route: 065
  7. GABAPENTIN [Suspect]
     Active Substance: GABAPENTIN
     Route: 065
  8. GABAPENTIN [Suspect]
     Active Substance: GABAPENTIN
  9. QUETIAPINE [Suspect]
     Active Substance: QUETIAPINE
     Indication: Formication
  10. QUETIAPINE [Suspect]
     Active Substance: QUETIAPINE
     Route: 065
  11. QUETIAPINE [Suspect]
     Active Substance: QUETIAPINE
     Route: 065
  12. QUETIAPINE [Suspect]
     Active Substance: QUETIAPINE
  13. DUPILUMAB [Suspect]
     Active Substance: DUPILUMAB
     Indication: Delusion of parasitosis
  14. DUPILUMAB [Suspect]
     Active Substance: DUPILUMAB
     Route: 065
  15. DUPILUMAB [Suspect]
     Active Substance: DUPILUMAB
     Route: 065
  16. DUPILUMAB [Suspect]
     Active Substance: DUPILUMAB
  17. DIPHENHYDRAMINE [Suspect]
     Active Substance: DIPHENHYDRAMINE
     Indication: Formication
  18. DIPHENHYDRAMINE [Suspect]
     Active Substance: DIPHENHYDRAMINE
     Route: 065
  19. DIPHENHYDRAMINE [Suspect]
     Active Substance: DIPHENHYDRAMINE
     Route: 065
  20. DIPHENHYDRAMINE [Suspect]
     Active Substance: DIPHENHYDRAMINE
  21. NALTREXONE [Suspect]
     Active Substance: NALTREXONE
     Indication: Formication
  22. NALTREXONE [Suspect]
     Active Substance: NALTREXONE
     Route: 065
  23. NALTREXONE [Suspect]
     Active Substance: NALTREXONE
     Route: 065
  24. NALTREXONE [Suspect]
     Active Substance: NALTREXONE
  25. IVERMECTIN [Concomitant]
     Active Substance: IVERMECTIN
     Indication: Formication
  26. IVERMECTIN [Concomitant]
     Active Substance: IVERMECTIN
     Route: 065
  27. IVERMECTIN [Concomitant]
     Active Substance: IVERMECTIN
     Route: 065
  28. IVERMECTIN [Concomitant]
     Active Substance: IVERMECTIN
  29. FLUCONAZOLE [Concomitant]
     Active Substance: FLUCONAZOLE
     Indication: Formication
  30. FLUCONAZOLE [Concomitant]
     Active Substance: FLUCONAZOLE
     Route: 065
  31. FLUCONAZOLE [Concomitant]
     Active Substance: FLUCONAZOLE
     Route: 065
  32. FLUCONAZOLE [Concomitant]
     Active Substance: FLUCONAZOLE

REACTIONS (1)
  - Therapy non-responder [Unknown]
